FAERS Safety Report 23455628 (Version 1)
Quarter: 2024Q1

REPORT INFORMATION
  Report Type: Spontaneous
  Country: US (occurrence: US)
  Receive Date: 20240130
  Receipt Date: 20240130
  Transmission Date: 20240410
  Serious: No
  Sender: FDA-Public Use
  Company Number: US-SA-SAC20240127000248

PATIENT
  Age: 69 Year
  Sex: Female

DRUGS (2)
  1. DUPIXENT [Suspect]
     Active Substance: DUPILUMAB
     Indication: Neurodermatitis
     Dosage: 1 DF QOW
     Route: 058
     Dates: start: 20230621
  2. MELATONIN [Concomitant]
     Active Substance: MELATONIN

REACTIONS (4)
  - Eye infection [Unknown]
  - Eye pruritus [Unknown]
  - Condition aggravated [Unknown]
  - Blepharitis [Unknown]

NARRATIVE: CASE EVENT DATE: 20230601
